FAERS Safety Report 25546522 (Version 1)
Quarter: 2025Q3

REPORT INFORMATION
  Report Type: Report from Study
  Country: GB (occurrence: GB)
  Receive Date: 20250713
  Receipt Date: 20250713
  Transmission Date: 20251020
  Serious: Yes (Other)
  Sender: ABBVIE
  Company Number: GB-ABBVIE-6364674

PATIENT
  Age: 24 Year
  Sex: Female

DRUGS (1)
  1. RINVOQ [Suspect]
     Active Substance: UPADACITINIB
     Indication: Product used for unknown indication
     Route: 048

REACTIONS (12)
  - Suicidal ideation [Unknown]
  - Skin infection [Unknown]
  - Skin infection [Recovered/Resolved]
  - Scab [Unknown]
  - Ear pain [Unknown]
  - Herpes zoster [Recovered/Resolved]
  - Blood cholesterol increased [Unknown]
  - Blood folate decreased [Unknown]
  - Vomiting [Recovered/Resolved]
  - Diarrhoea [Recovered/Resolved]
  - Herpes zoster [Unknown]
  - COVID-19 [Recovered/Resolved]

NARRATIVE: CASE EVENT DATE: 20220523
